FAERS Safety Report 8542568-X (Version None)
Quarter: 2012Q3

REPORT INFORMATION
  Report Type: 
  Country: None (occurrence: None)
  Receive Date: 20120726
  Receipt Date: 20120724
  Transmission Date: 20120928
  Serious: Yes (Life-Threatening, Hospitalization)
  Sender: FDA-Public Use
  Company Number: DE-ABBOTT-12P-062-0959703-00

PATIENT
  Sex: Male
  Weight: 70 kg

DRUGS (2)
  1. TRUVADA [Concomitant]
     Indication: HIV INFECTION
     Route: 048
     Dates: start: 20120502
  2. KALETRA [Suspect]
     Indication: HIV INFECTION
     Dates: start: 20120502

REACTIONS (1)
  - LEISHMANIASIS [None]
